FAERS Safety Report 7304980-6 (Version None)
Quarter: 2011Q1

REPORT INFORMATION
  Report Type: 
  Country: None (occurrence: None)
  Receive Date: 20110222
  Receipt Date: 20100707
  Transmission Date: 20110831
  Serious: No
  Sender: FDA-Public Use
  Company Number: US-PFIZER INC-2010068201

PATIENT
  Sex: Female
  Weight: 73 kg

DRUGS (5)
  1. PAXIL [Concomitant]
     Dosage: 20 MG, DAILY
  2. XALATAN [Suspect]
     Indication: OPEN ANGLE GLAUCOMA
     Dosage: 1 GTT, IN BOTH THE EYES
     Dates: start: 20081201, end: 20100520
  3. SERAX [Concomitant]
     Dosage: 15 MG, 3X/DAY
  4. VICODIN [Concomitant]
     Dosage: 500 MG, 4X/DAY
  5. NAPROXEN [Concomitant]
     Dosage: 500 MG, 2X/DAY

REACTIONS (2)
  - ABNORMAL SENSATION IN EYE [None]
  - EYE IRRITATION [None]
